FAERS Safety Report 4678663-5 (Version None)
Quarter: 2005Q2

REPORT INFORMATION
  Report Type: 
  Country: None (occurrence: None)
  Receive Date: 20050527
  Receipt Date: 20050518
  Transmission Date: 20051028
  Serious: Yes (Death, Life-Threatening, Hospitalization)
  Sender: FDA-Public Use
  Company Number: 008

PATIENT
  Sex: Female
  Weight: 79.3795 kg

DRUGS (8)
  1. FAZACLO [Suspect]
     Indication: BIPOLAR DISORDER
     Dosage: 150 MG PO DAILY
     Dates: start: 20041101, end: 20050420
  2. TYLENOL W/CODEINE #3 [Concomitant]
  3. ALBUTEROL [Concomitant]
  4. PROZAC [Concomitant]
  5. DEPAKOTE [Concomitant]
  6. DEXEDRINE [Concomitant]
  7. LEVOTHYROXINE SODIUM [Concomitant]
  8. SENNA [Concomitant]

REACTIONS (6)
  - BLOOD PRESSURE ABNORMAL [None]
  - COLITIS [None]
  - OXYGEN SATURATION DECREASED [None]
  - RESPIRATORY DISTRESS [None]
  - SEDATION [None]
  - SEPTIC SHOCK [None]
